FAERS Safety Report 18622871 (Version 2)
Quarter: 2021Q1

REPORT INFORMATION
  Report Type: Spontaneous
  Country: US (occurrence: US)
  Receive Date: 20201216
  Receipt Date: 20210114
  Transmission Date: 20210419
  Serious: Yes (Death)
  Sender: FDA-Public Use
  Company Number: US-INSMED, INC.-US-INS-20-02341

PATIENT
  Age: 86 Year
  Sex: Male

DRUGS (1)
  1. ARIKAYCE [Suspect]
     Active Substance: AMIKACIN
     Indication: MYCOBACTERIAL INFECTION
     Route: 055
     Dates: end: 20201204

REACTIONS (4)
  - Coagulopathy [Fatal]
  - Pulmonary haemorrhage [Fatal]
  - Bronchial disorder [Fatal]
  - Fatigue [Unknown]

NARRATIVE: CASE EVENT DATE: 20201205
